FAERS Safety Report 9820811 (Version 1)
Quarter: 2014Q1

REPORT INFORMATION
  Report Type: Spontaneous
  Country: US (occurrence: US)
  Receive Date: 20140116
  Receipt Date: 20140116
  Transmission Date: 20141002
  Serious: No
  Sender: FDA-Public Use
  Company Number: US-PFIZER INC-2014011698

PATIENT
  Age: 2 Year
  Sex: Male
  Weight: 15.42 kg

DRUGS (1)
  1. CHILDRENS ADVIL [Suspect]
     Indication: PYREXIA
     Dosage: ONE TEASPOON, THREE TIMES A DAY
     Route: 048
     Dates: start: 20140112, end: 20140113

REACTIONS (1)
  - Vomiting [Recovered/Resolved]
